FAERS Safety Report 12712692 (Version 1)
Quarter: 2016Q3

REPORT INFORMATION
  Report Type: Report from Study
  Country: US (occurrence: US)
  Receive Date: 20160902
  Receipt Date: 20160902
  Transmission Date: 20161109
  Serious: Yes (Other)
  Sender: FDA-Public Use
  Company Number: US-JNJFOC-20160823472

PATIENT
  Age: 69 Year
  Sex: Female
  Weight: 62 kg

DRUGS (11)
  1. IBRUTINIB [Suspect]
     Active Substance: IBRUTINIB
     Indication: CENTRAL NERVOUS SYSTEM LYMPHOMA
     Dosage: ON DAYS 1-14, TOTAL DOSE DMINISTERED 5600 MG
     Route: 048
     Dates: start: 20141121, end: 20141130
  2. DOXORUBICIN [Suspect]
     Active Substance: DOXORUBICIN
     Indication: CENTRAL NERVOUS SYSTEM LYMPHOMA
     Dosage: 50 MG/M2/DAY OVER 1 HOUR ON DAY 2, TOTAL DOSE ADMINISTERED 64.4 MG
     Route: 042
     Dates: start: 20141122, end: 20141122
  3. ATENOLOL. [Concomitant]
     Active Substance: ATENOLOL
  4. TEMOZOLOMIDE. [Suspect]
     Active Substance: TEMOZOLOMIDE
     Indication: CENTRAL NERVOUS SYSTEM LYMPHOMA
     Dosage: 100 MG/M2 OVER 90 MINUTES ON DAYS 2-5 TOTAL DOSE ADMINISTERED 772 MG
     Route: 042
     Dates: start: 20141122, end: 20141125
  5. ETOPOSIDE. [Suspect]
     Active Substance: ETOPOSIDE
     Indication: CENTRAL NERVOUS SYSTEM LYMPHOMA
     Dosage: 50 MG/M2 OVER 30-60 MINUTES ON DAYS 2-5, TOTAL DOSE ADMINISTERED 386.4 MG
     Route: 042
     Dates: start: 20141122, end: 20141125
  6. CYTARABINE. [Suspect]
     Active Substance: CYTARABINE
     Indication: CENTRAL NERVOUS SYSTEM LYMPHOMA
     Dosage: 70 MG ON DAYS 1 AND 5 OF CYCLE 2-6 TOTAL DOSE DMINISTERED 140 MG
     Route: 037
     Dates: start: 20141121, end: 20141125
  7. DEXAMETHASONE. [Suspect]
     Active Substance: DEXAMETHASONE
     Indication: CENTRAL NERVOUS SYSTEM LYMPHOMA
     Dosage: 10 MG/M2 TWICE A DAY 1-5, TOTAL DOSE ADMINISTERED 160 MG
     Route: 048
     Dates: start: 20141121, end: 20141125
  8. AMLODIPINE [Concomitant]
     Active Substance: AMLODIPINE BESYLATE
  9. BENICAR [Concomitant]
     Active Substance: OLMESARTAN MEDOXOMIL
  10. RITUXIMAB [Suspect]
     Active Substance: RITUXIMAB
     Indication: CENTRAL NERVOUS SYSTEM LYMPHOMA
     Dosage: 375 MG/M2 ON DAYS 1 AND 2 TOTAL DOSE ADMINISTERED 1200 MG
     Route: 042
     Dates: start: 20141121, end: 20141122
  11. NEULASTA [Suspect]
     Active Substance: PEGFILGRASTIM
     Indication: CENTRAL NERVOUS SYSTEM LYMPHOMA
     Dosage: ON DAY 6
     Route: 058
     Dates: start: 20141126, end: 20141126

REACTIONS (1)
  - Syncope [Recovered/Resolved]

NARRATIVE: CASE EVENT DATE: 20141128
